FAERS Safety Report 6536675-0 (Version None)
Quarter: 2010Q1

REPORT INFORMATION
  Report Type: 
  Country: None (occurrence: None)
  Receive Date: 20100106
  Receipt Date: 20091228
  Transmission Date: 20100710
  Serious: Yes (Other)
  Sender: FDA-Public Use
  Company Number: 2009US004535

PATIENT
  Age: 77 Year
  Sex: Female
  Weight: 64 kg

DRUGS (12)
  1. PROTOPIC [Suspect]
     Indication: SKIN IRRITATION
     Dosage: 0.1%, TOPICAL
     Route: 061
     Dates: start: 20091101, end: 20091101
  2. RITMONORM      (PROPAFENONE HYDROCHLORIDE) [Concomitant]
  3. ENALAPRIL MALEATE AND HYDROCHLOROTHIAZIDE [Concomitant]
  4. LASIX [Concomitant]
  5. OMEPRAZOLE [Concomitant]
  6. DOMPERIDONE (DOMEPERIDONE) [Concomitant]
  7. TICLID [Concomitant]
  8. FLUOXETINE [Concomitant]
  9. BROMAZEPAM (BROMAZEPAM) [Concomitant]
  10. PARACIL (PARACETAMOL) [Concomitant]
  11. B COMPLEX (VITAMIN-B-KOMPLEX STANDARD) [Concomitant]
  12. MINERAL OIL EMULSION (MINERAL OIL EMULSION) [Concomitant]

REACTIONS (3)
  - DYSPNOEA [None]
  - LARYNGEAL OEDEMA [None]
  - RASH MACULAR [None]
